FAERS Safety Report 18099669 (Version 1)
Quarter: 2020Q3

REPORT INFORMATION
  Report Type: Spontaneous
  Country: CA (occurrence: CA)
  Receive Date: 20200731
  Receipt Date: 20200731
  Transmission Date: 20201103
  Serious: Yes (Death)
  Sender: FDA-Public Use
  Company Number: CA-PFIZER INC-2020291158

PATIENT
  Age: 27 Year
  Sex: Female
  Weight: 98 kg

DRUGS (3)
  1. COCAINE [Suspect]
     Active Substance: COCAINE
     Dosage: UNK
  2. FENTANYL CITRATE. [Suspect]
     Active Substance: FENTANYL CITRATE
     Dosage: UNK
  3. METHAMPHETAMINE HCL [Suspect]
     Active Substance: METHAMPHETAMINE HYDROCHLORIDE
     Dosage: UNK

REACTIONS (2)
  - Toxicologic test abnormal [Fatal]
  - Toxicity to various agents [Fatal]
